FAERS Safety Report 19221810 (Version 3)
Quarter: 2021Q4

REPORT INFORMATION
  Report Type: Spontaneous
  Country: JP (occurrence: JP)
  Receive Date: 20210505
  Receipt Date: 20211018
  Transmission Date: 20220303
  Serious: Yes (Death)
  Sender: FDA-Public Use
  Company Number: JP-ALLERGAN-2117202US

PATIENT
  Sex: Male

DRUGS (6)
  1. ASENAPINE MALEATE [Suspect]
     Active Substance: ASENAPINE MALEATE
     Indication: Cerebral disorder
     Dosage: 2.5 MG, PRN
     Route: 060
     Dates: start: 20200907, end: 20200908
  2. ASENAPINE MALEATE [Suspect]
     Active Substance: ASENAPINE MALEATE
     Indication: Insomnia
  3. ASENAPINE MALEATE [Suspect]
     Active Substance: ASENAPINE MALEATE
     Indication: Agitation
  4. LEMBOREXANT [Concomitant]
     Active Substance: LEMBOREXANT
     Dosage: UNK
     Dates: start: 20200907, end: 20201027
  5. OLANZAPINE [Concomitant]
     Active Substance: OLANZAPINE
     Dosage: 2.5 MG
     Dates: start: 20200907, end: 20201027
  6. QUETIAPINE FUMARATE [Concomitant]
     Active Substance: QUETIAPINE FUMARATE
     Dosage: 25 MG
     Dates: start: 20200907, end: 20201027

REACTIONS (2)
  - Pneumonia aspiration [Fatal]
  - Off label use [Unknown]
